FAERS Safety Report 23916887 (Version 1)
Quarter: 2024Q2

REPORT INFORMATION
  Report Type: Report from Study
  Country: US (occurrence: US)
  Receive Date: 20240529
  Receipt Date: 20240529
  Transmission Date: 20240716
  Serious: Yes (Other)
  Sender: FDA-Public Use
  Company Number: US-GILEAD-2024-0673929

PATIENT
  Age: 84 Year
  Sex: Female

DRUGS (1)
  1. SACITUZUMAB GOVITECAN-HZIY [Suspect]
     Active Substance: SACITUZUMAB GOVITECAN-HZIY
     Indication: Breast cancer female
     Dosage: 810MG INTRAVENOUSLY ON DAYS 1 AND 8 EVERY 21 DAYS
     Route: 042
     Dates: start: 20240422

REACTIONS (1)
  - Neoplasm malignant [Unknown]
